FAERS Safety Report 5688813-X (Version None)
Quarter: 2008Q1

REPORT INFORMATION
  Report Type: 
  Country: None (occurrence: None)
  Receive Date: 20080331
  Receipt Date: 20000809
  Transmission Date: 20080703
  Serious: Yes (Death, Other)
  Sender: FDA-Public Use
  Company Number: AU-ROCHE-242700

PATIENT
  Age: 18 Year
  Sex: Male

DRUGS (9)
  1. VALIUM [Suspect]
     Indication: DRUG USE FOR UNKNOWN INDICATION
     Route: 048
     Dates: start: 19990529
  2. VALIUM [Suspect]
     Route: 048
  3. VALIUM [Suspect]
     Dosage: DOSE UNKNOWN
     Route: 048
  4. VALIUM [Suspect]
     Route: 048
     Dates: start: 19990601
  5. VALIUM [Suspect]
     Dosage: TAPERING DOSE: REDUCED BY 5 MG PER DAY.
     Route: 048
     Dates: start: 19990604
  6. VALIUM [Suspect]
     Route: 048
     Dates: start: 19990605
  7. METHADON HCL TAB [Suspect]
     Indication: DRUG USE FOR UNKNOWN INDICATION
     Route: 065
     Dates: start: 19990606, end: 19990606
  8. HEROIN [Concomitant]
  9. HEROIN [Concomitant]
     Dosage: OVERDOSE
     Dates: start: 19990603

REACTIONS (5)
  - AMNESIA [None]
  - COMA [None]
  - CONFUSIONAL STATE [None]
  - OVERDOSE [None]
  - RESPIRATORY FAILURE [None]
